FAERS Safety Report 6200377-0 (Version None)
Quarter: 2009Q2

REPORT INFORMATION
  Report Type: 
  Country: None (occurrence: None)
  Receive Date: 20090522
  Receipt Date: 20090515
  Transmission Date: 20091009
  Serious: Yes (Other)
  Sender: FDA-Public Use
  Company Number: US-CVT-090300

PATIENT

DRUGS (2)
  1. RANEXA [Suspect]
     Indication: ANGINA PECTORIS
     Dosage: 500 MG, BID
     Route: 048
     Dates: start: 20081201, end: 20090513
  2. RANEXA [Suspect]
     Dosage: 500 MG, QD
     Route: 048
     Dates: start: 20081201, end: 20090513

REACTIONS (3)
  - ABASIA [None]
  - DYSSTASIA [None]
  - MOTOR DYSFUNCTION [None]
